FAERS Safety Report 8559719-3 (Version None)
Quarter: 2012Q3

REPORT INFORMATION
  Report Type: 
  Country: None (occurrence: None)
  Receive Date: 20120802
  Receipt Date: 20120730
  Transmission Date: 20120928
  Serious: No
  Sender: FDA-Public Use
  Company Number: US-PFIZER INC-2012185210

PATIENT
  Sex: Female
  Weight: 52.2 kg

DRUGS (3)
  1. PREMARIN [Suspect]
     Indication: VULVOVAGINAL DRYNESS
     Dosage: UNK, 2X/WEEK
     Route: 067
     Dates: start: 20120728
  2. PREMARIN [Suspect]
     Dosage: UNK, 2X/WEEK
     Route: 067
  3. PREMPRO [Concomitant]
     Indication: MENOPAUSE
     Dosage: 0.3/1.5 MG, WEEKLY
     Route: 048

REACTIONS (3)
  - EXPIRED DRUG ADMINISTERED [None]
  - VULVOVAGINAL PAIN [None]
  - VULVOVAGINAL DISCOMFORT [None]
